FAERS Safety Report 9627153 (Version 1)
Quarter: 2013Q4

REPORT INFORMATION
  Report Type: Report from Study
  Country: US (occurrence: US)
  Receive Date: 20131016
  Receipt Date: 20131016
  Transmission Date: 20140711
  Serious: Yes (Disabling, Other)
  Sender: FDA-Public Use
  Company Number: US-ROCHE-1287783

PATIENT
  Age: 56 Year
  Sex: Female

DRUGS (2)
  1. RIVOTRIL [Suspect]
     Indication: SCHIZOPHRENIA
     Route: 065
  2. SEROQUEL [Suspect]
     Indication: SCHIZOPHRENIA
     Route: 065

REACTIONS (10)
  - Disease progression [Unknown]
  - Activities of daily living impaired [Unknown]
  - Anxiety [Unknown]
  - Flat affect [Unknown]
  - Social avoidant behaviour [Unknown]
  - Impulse-control disorder [Unknown]
  - Apathy [Unknown]
  - Cognitive disorder [Unknown]
  - Thinking abnormal [Unknown]
  - Stress [Unknown]
